FAERS Safety Report 18967663 (Version 1)
Quarter: 2021Q1

REPORT INFORMATION
  Report Type: Spontaneous
  Country: US (occurrence: US)
  Receive Date: 20210304
  Receipt Date: 20210304
  Transmission Date: 20210420
  Serious: Yes (Hospitalization)
  Sender: FDA-Public Use
  Company Number: US-B.I. PHARMACEUTICALS,INC./RIDGEFIELD-2021-BI-086432

PATIENT
  Sex: Female

DRUGS (20)
  1. COMBIGAN [Concomitant]
     Active Substance: BRIMONIDINE TARTRATE\TIMOLOL MALEATE
     Indication: PRODUCT USED FOR UNKNOWN INDICATION
     Dosage: 1 DROP BOTH EYES EVERY 12 HOURS
     Route: 047
     Dates: start: 20200117
  2. PANTOPRAZOLE [Concomitant]
     Active Substance: PANTOPRAZOLE
     Indication: PRODUCT USED FOR UNKNOWN INDICATION
     Dosage: 20MG DELAYED RELEASE DAILY
     Route: 065
     Dates: start: 20160616
  3. GABAPENTIN. [Concomitant]
     Active Substance: GABAPENTIN
     Indication: PRODUCT USED FOR UNKNOWN INDICATION
     Dosage: 300MG BID
     Route: 065
     Dates: start: 2020
  4. VITAMIN D3 [Concomitant]
     Active Substance: CHOLECALCIFEROL
     Indication: PRODUCT USED FOR UNKNOWN INDICATION
     Dosage: 2000 UNITS
     Route: 065
     Dates: start: 20160718
  5. ELIQUIS [Concomitant]
     Active Substance: APIXABAN
     Indication: PRODUCT USED FOR UNKNOWN INDICATION
     Dosage: 5MG BID
     Route: 065
     Dates: start: 2020
  6. LANTUS [Concomitant]
     Active Substance: INSULIN GLARGINE
     Indication: PRODUCT USED FOR UNKNOWN INDICATION
     Dosage: 50 UNITS BEFORE BREAKFAST
     Route: 065
     Dates: start: 20160727
  7. HUMULIN R [Concomitant]
     Active Substance: INSULIN HUMAN
     Indication: PRODUCT USED FOR UNKNOWN INDICATION
     Dosage: 15 UNITS
     Route: 065
     Dates: start: 20200225
  8. LANTUS [Concomitant]
     Active Substance: INSULIN GLARGINE
     Dosage: 55 UNITS AT BEDTIME
     Route: 065
     Dates: start: 20160727
  9. POTASSIUM [Concomitant]
     Active Substance: POTASSIUM
     Indication: PRODUCT USED FOR UNKNOWN INDICATION
     Dosage: 99MG
     Route: 065
     Dates: start: 20160616
  10. OTEZLA [Concomitant]
     Active Substance: APREMILAST
     Indication: PRODUCT USED FOR UNKNOWN INDICATION
     Dosage: 30MG BID
     Route: 065
     Dates: start: 20200616
  11. HUMALOG [Concomitant]
     Active Substance: INSULIN LISPRO
     Indication: PRODUCT USED FOR UNKNOWN INDICATION
     Dosage: 18 UNITS TID
     Route: 065
     Dates: start: 20160727
  12. LEVOTHYROXINE. [Concomitant]
     Active Substance: LEVOTHYROXINE
     Indication: PRODUCT USED FOR UNKNOWN INDICATION
     Dosage: 150MG DAILY
     Route: 065
     Dates: start: 20200616
  13. OMEPRAZOLE. [Concomitant]
     Active Substance: OMEPRAZOLE
     Indication: PRODUCT USED FOR UNKNOWN INDICATION
     Dosage: 40MG DELAYED RELEASE DAILY
     Route: 065
     Dates: start: 20160616
  14. VITAMIN B12 [MECOBALAMIN] [Concomitant]
     Dosage: 1000MG
     Route: 065
     Dates: start: 20160718
  15. HUMULIN R [Concomitant]
     Active Substance: INSULIN HUMAN
     Dosage: 65 UNITS BEFORE BREAKFAST AND 75 UNITS BEFOORE DINNER
     Dates: start: 20180906
  16. METOPROLOL SUCCINATE. [Concomitant]
     Active Substance: METOPROLOL SUCCINATE
     Indication: PRODUCT USED FOR UNKNOWN INDICATION
     Dosage: 25MG ER DAILY
     Route: 065
     Dates: start: 20200616
  17. TRAVATAN Z [Concomitant]
     Active Substance: TRAVOPROST
     Indication: PRODUCT USED FOR UNKNOWN INDICATION
     Dosage: 0.004% 1 DROP BOTH EYES AT BEDTIME
     Route: 047
     Dates: start: 20191001
  18. TRULICITY [Concomitant]
     Active Substance: DULAGLUTIDE
     Indication: PRODUCT USED FOR UNKNOWN INDICATION
     Dosage: 1.5MG/0.5ML EVERY 7 DAYS
     Route: 065
     Dates: start: 20200108
  19. JARDIANCE [Suspect]
     Active Substance: EMPAGLIFLOZIN
     Indication: PRODUCT USED FOR UNKNOWN INDICATION
     Dosage: 25MG DAILY
     Route: 065
     Dates: start: 202006
  20. VITAMIN B12 [MECOBALAMIN] [Concomitant]
     Indication: PRODUCT USED FOR UNKNOWN INDICATION
     Dosage: 1000MG SL
     Route: 060
     Dates: start: 2020

REACTIONS (1)
  - Fall [Unknown]
